FAERS Safety Report 12825816 (Version 4)
Quarter: 2017Q2

REPORT INFORMATION
  Report Type: Report from Study
  Country: AU (occurrence: AU)
  Receive Date: 20161007
  Receipt Date: 20170407
  Transmission Date: 20170830
  Serious: Yes (Hospitalization, Disabling, Other)
  Sender: FDA-Public Use
  Company Number: AU-REGENERON PHARMACEUTICALS, INC.-2016-22198

PATIENT

DRUGS (1)
  1. EYLEA [Suspect]
     Active Substance: AFLIBERCEPT
     Indication: NEOVASCULAR AGE-RELATED MACULAR DEGENERATION
     Dosage: 2 MG, 3 MONTHS
     Route: 031
     Dates: start: 20160301

REACTIONS (7)
  - Drug dose omission [Unknown]
  - Confusional state [Unknown]
  - Cystitis [Recovering/Resolving]
  - Muscular weakness [Unknown]
  - Skin neoplasm excision [Unknown]
  - Cystitis [Recovered/Resolved]
  - Abasia [Unknown]

NARRATIVE: CASE EVENT DATE: 20160817
